FAERS Safety Report 7769217-2 (Version None)
Quarter: 2011Q3

REPORT INFORMATION
  Report Type: 
  Country: None (occurrence: None)
  Receive Date: 20110922
  Receipt Date: 20110916
  Transmission Date: 20111222
  Serious: Yes (Hospitalization, Other)
  Sender: FDA-Public Use
  Company Number: JP-PFIZER INC-2011208972

PATIENT
  Age: 46 Year
  Sex: Male

DRUGS (17)
  1. TOPIRAMATE [Suspect]
     Dosage: 200 MG/DAY
  2. CARBAMAZEPINE [Suspect]
  3. BROMAZEPAM [Suspect]
  4. CLOTIAZEPAM [Suspect]
  5. TOPIRAMATE [Suspect]
     Dosage: 100 MG/DAY
  6. PROMETHAZINE [Suspect]
  7. BLONANSERIN [Suspect]
     Dosage: 16 MG/DAY
  8. FLUNITRAZEPAM [Suspect]
     Dosage: 4 MG/DAY
  9. LITHIUM [Suspect]
  10. DIAZEPAM [Suspect]
  11. BLONANSERIN [Suspect]
     Dosage: 24 MG/DAY
  12. CHLORPROMAZINE [Suspect]
  13. BIPERIDEN [Suspect]
  14. ETIZOLAM [Suspect]
  15. FLUVOXAMINE [Suspect]
  16. SULPIRIDE [Suspect]
  17. PHENOBARBITAL TAB [Suspect]

REACTIONS (2)
  - BRADYKINESIA [None]
  - NEUROLEPTIC MALIGNANT SYNDROME [None]
